FAERS Safety Report 21098793 (Version 1)
Quarter: 2022Q3

REPORT INFORMATION
  Report Type: Spontaneous
  Country: US (occurrence: US)
  Receive Date: 20220719
  Receipt Date: 20220719
  Transmission Date: 20221027
  Serious: Yes (Hospitalization)
  Sender: FDA-Public Use
  Company Number: US-NORTHSTAR HEALTHCARE HOLDINGS-US-2022NSR000041

PATIENT
  Age: 61 Year
  Sex: Male

DRUGS (21)
  1. BACLOFEN [Suspect]
     Active Substance: BACLOFEN
     Indication: Product used for unknown indication
     Dosage: UNK
     Route: 037
  2. BACLOFEN [Suspect]
     Active Substance: BACLOFEN
     Dosage: UNK, PUMP RATE DECREASED BY 6%
     Route: 037
  3. BACLOFEN [Suspect]
     Active Substance: BACLOFEN
     Dosage: UNK, PUMP RATE DECREASED BY 15%
     Route: 037
  4. BACLOFEN [Suspect]
     Active Substance: BACLOFEN
     Dosage: UNK, PUMP RATE DECREASED BY 10%
     Route: 037
  5. BACLOFEN [Suspect]
     Active Substance: BACLOFEN
     Dosage: 10 MG, TID
     Route: 048
  6. BACLOFEN [Suspect]
     Active Substance: BACLOFEN
     Dosage: 15 MG, TID
     Route: 048
  7. BACLOFEN [Suspect]
     Active Substance: BACLOFEN
     Dosage: UNK, PUMP RATE INCREASED BY 23%
     Route: 037
  8. ZICONOTIDE [Suspect]
     Active Substance: ZICONOTIDE
     Indication: Product used for unknown indication
     Dosage: UNK
     Route: 037
  9. ZICONOTIDE [Suspect]
     Active Substance: ZICONOTIDE
     Dosage: UNK, PUMP RATE DECREASED BY 6%
     Route: 037
  10. ZICONOTIDE [Suspect]
     Active Substance: ZICONOTIDE
     Dosage: UNK, PUMP RATE DECREASED BY 15%
     Route: 037
  11. ZICONOTIDE [Suspect]
     Active Substance: ZICONOTIDE
     Dosage: UNK, PUMP RATE DECREASED BY 10%
     Route: 037
  12. ZICONOTIDE [Suspect]
     Active Substance: ZICONOTIDE
     Dosage: UNK, PUMP RATE INCREASED BY 23%
     Route: 037
  13. FENTANYL [Suspect]
     Active Substance: FENTANYL
     Indication: Product used for unknown indication
     Dosage: UNK
     Route: 037
  14. FENTANYL [Suspect]
     Active Substance: FENTANYL
     Dosage: UNK, PUMP RATE DECREASED BY 6%
     Route: 037
  15. FENTANYL [Suspect]
     Active Substance: FENTANYL
     Dosage: UNK, PUMP RATE DECREASED BY 15%
     Route: 037
  16. FENTANYL [Suspect]
     Active Substance: FENTANYL
     Dosage: UNK, PUMP RATE DECREASED BY 10%
     Route: 037
  17. FENTANYL [Suspect]
     Active Substance: FENTANYL
     Dosage: UNK, PUMP RATE INCREASED BY 23%
     Route: 037
  18. MIRTAZAPINE [Suspect]
     Active Substance: MIRTAZAPINE
     Indication: Product used for unknown indication
     Dosage: UNK
     Route: 065
  19. DULOXETINE [Suspect]
     Active Substance: DULOXETINE
     Indication: Product used for unknown indication
     Dosage: UNK
     Route: 065
  20. AMITRIPTYLINE [Suspect]
     Active Substance: AMITRIPTYLINE
     Indication: Product used for unknown indication
     Dosage: UNK
     Route: 065
  21. PREGABALIN [Suspect]
     Active Substance: PREGABALIN
     Indication: Product used for unknown indication
     Dosage: UNK
     Route: 065

REACTIONS (2)
  - Toxicity to various agents [Recovered/Resolved]
  - Drug withdrawal syndrome [Recovered/Resolved]
